FAERS Safety Report 5767366-1 (Version None)
Quarter: 2008Q2

REPORT INFORMATION
  Report Type: 
  Country: None (occurrence: None)
  Receive Date: 20080612
  Receipt Date: 20080609
  Transmission Date: 20081010
  Serious: Yes (Other)
  Sender: FDA-Public Use
  Company Number: A0732719A

PATIENT
  Sex: Male

DRUGS (6)
  1. AVODART [Suspect]
     Indication: DRUG USE FOR UNKNOWN INDICATION
     Dosage: .5MG PER DAY
     Route: 048
  2. ASPIRIN [Concomitant]
  3. ADALAT [Concomitant]
  4. ALTACE [Concomitant]
  5. ANTI-HYPERCHOLESTEROLAEMIC [Concomitant]
  6. WATER PILL [Concomitant]

REACTIONS (3)
  - DEPRESSED MOOD [None]
  - HAEMORRHAGIC DIATHESIS [None]
  - WOUND HAEMORRHAGE [None]
